FAERS Safety Report 8345766-3 (Version None)
Quarter: 2012Q2

REPORT INFORMATION
  Report Type: 
  Country: None (occurrence: None)
  Receive Date: 20120508
  Receipt Date: 20120425
  Transmission Date: 20120825
  Serious: Yes (Hospitalization, Other)
  Sender: FDA-Public Use
  Company Number: US-ELI_LILLY_AND_COMPANY-US201012001770

PATIENT
  Sex: Female

DRUGS (16)
  1. PLAVIX [Concomitant]
     Dosage: 75 MG, QD
  2. ACETAMINOPHEN [Concomitant]
     Dosage: 2500 MG, QD
  3. TIMOPTIC [Concomitant]
     Dosage: 1 DF, UNK
  4. LEVOTHYROXINE SODIUM [Concomitant]
     Dosage: 0.075 MG, QD
  5. RANITIDINE [Concomitant]
     Dosage: 150 MG, QD
  6. FORTEO [Suspect]
     Dosage: 20 UG, QD
  7. ASPIRIN [Concomitant]
     Dosage: 81 MG, QD
  8. VIACTIV                            /01483701/ [Concomitant]
     Dosage: UNK UNK, QD
  9. FORTEO [Suspect]
     Dosage: 20 UG, QD
  10. METOPROLOL TARTRATE [Concomitant]
     Dosage: 25 MG, BID
  11. TRAMADOL HYDROCHLORIDE [Concomitant]
     Dosage: 50 MG, TID
  12. SIMVASTATIN [Concomitant]
     Dosage: 40 MG, QD
  13. PAROXETINE [Concomitant]
     Dosage: 20 MG, QD
  14. MULTI-VITAMIN [Concomitant]
     Dosage: UNK, QD
  15. FORTEO [Suspect]
     Indication: OSTEOPOROSIS
     Dosage: 20 UG, QD
  16. NITROSTAT [Concomitant]
     Dosage: 0.4 MG, PRN

REACTIONS (13)
  - STENT PLACEMENT [None]
  - ASTHENIA [None]
  - CHEST PAIN [None]
  - URINARY TRACT INFECTION [None]
  - PAIN IN EXTREMITY [None]
  - DRUG DOSE OMISSION [None]
  - MEMORY IMPAIRMENT [None]
  - DEHYDRATION [None]
  - OESOPHAGEAL DISORDER [None]
  - SPINAL PAIN [None]
  - ARTHRALGIA [None]
  - ARTHRITIS [None]
  - DELUSION [None]
